FAERS Safety Report 4893647-X (Version None)
Quarter: 2005Q4

REPORT INFORMATION
  Report Type: 
  Country: None (occurrence: None)
  Receive Date: 20051223
  Receipt Date: 20051004
  Transmission Date: 20060501
  Serious: No
  Sender: FDA-Public Use
  Company Number: 2005PV002855

PATIENT
  Age: 44 Year
  Sex: Male
  Weight: 120.2032 kg

DRUGS (4)
  1. SYMLIN [Suspect]
     Indication: DIABETES MELLITUS INSULIN-DEPENDENT
     Dosage: 60 MCG;TID;SC ; 192 MCG;X1;SC
     Route: 058
     Dates: start: 20051004, end: 20051004
  2. SYMLIN [Suspect]
     Indication: DIABETES MELLITUS INSULIN-DEPENDENT
     Dosage: 60 MCG;TID;SC ; 192 MCG;X1;SC
     Route: 058
     Dates: start: 20050914
  3. LANTUS [Concomitant]
  4. HUMALOG [Concomitant]

REACTIONS (5)
  - BLOOD GLUCOSE DECREASED [None]
  - DIZZINESS [None]
  - NAUSEA [None]
  - TREMOR [None]
  - WRONG DRUG ADMINISTERED [None]
